FAERS Safety Report 6386075-1 (Version None)
Quarter: 2009Q4

REPORT INFORMATION
  Report Type: 
  Country: None (occurrence: None)
  Receive Date: 20091002
  Receipt Date: 20081111
  Transmission Date: 20100525
  Serious: No
  Sender: FDA-Public Use
  Company Number: US-ASTRAZENECA-2008UW25261

PATIENT
  Age: 61 Year
  Sex: Female

DRUGS (7)
  1. ARIMIDEX [Suspect]
     Route: 048
     Dates: start: 20081009
  2. SYNTHROID [Concomitant]
  3. PREVACID [Concomitant]
  4. CALCIUM [Concomitant]
  5. MAGNESIUM [Concomitant]
  6. VITAMIN D [Concomitant]
  7. ASCORBIC ACID [Concomitant]

REACTIONS (7)
  - HEADACHE [None]
  - HYPOAESTHESIA [None]
  - INSOMNIA [None]
  - MUSCULOSKELETAL DISORDER [None]
  - MYALGIA [None]
  - NECK PAIN [None]
  - OROPHARYNGEAL PAIN [None]
